FAERS Safety Report 12977235 (Version 1)
Quarter: 2016Q4

REPORT INFORMATION
  Report Type: Spontaneous
  Country: GB (occurrence: GB)
  Receive Date: 20161128
  Receipt Date: 20161128
  Transmission Date: 20170207
  Serious: Yes (Other)
  Sender: FDA-Public Use
  Company Number: GB-ACCORD-045830

PATIENT
  Age: 80 Year
  Sex: Male
  Weight: 83 kg

DRUGS (7)
  1. SPIRONOLACTONE. [Concomitant]
     Active Substance: SPIRONOLACTONE
     Dates: start: 20141014, end: 20160809
  2. RAMIPRIL. [Concomitant]
     Active Substance: RAMIPRIL
     Dates: start: 20141014
  3. AMLODIPINE [Suspect]
     Active Substance: AMLODIPINE BESYLATE
     Indication: PRODUCT USED FOR UNKNOWN INDICATION
     Dates: start: 20161107
  4. FLOMAXTRA XL [Concomitant]
     Active Substance: TAMSULOSIN HYDROCHLORIDE
     Dates: start: 20141014
  5. PROSCAR [Concomitant]
     Active Substance: FINASTERIDE
     Dates: start: 20141014
  6. BENDROFLUMETHIAZIDE [Concomitant]
     Active Substance: BENDROFLUMETHIAZIDE
     Dosage: EACH MORNING.
     Dates: start: 20161107
  7. AMOROLFINE/AMOROLFINE HYDROCHLORIDE [Concomitant]
     Dosage: ONE OR TWICE WEEKLY
     Dates: start: 20160928, end: 20160929

REACTIONS (3)
  - Skin tightness [Unknown]
  - Hallucination [Recovered/Resolved]
  - Malaise [Unknown]

NARRATIVE: CASE EVENT DATE: 20161107
